FAERS Safety Report 7874841-2 (Version None)
Quarter: 2011Q4

REPORT INFORMATION
  Report Type: 
  Country: None (occurrence: None)
  Receive Date: 20111031
  Receipt Date: 20111026
  Transmission Date: 20120403
  Serious: Yes (Hospitalization, Other)
  Sender: FDA-Public Use
  Company Number: CH-JNJFOC-20111005827

PATIENT
  Age: 21 Year
  Sex: Female

DRUGS (8)
  1. RISPERDAL [Suspect]
     Indication: PRODUCT USED FOR UNKNOWN INDICATION
     Route: 048
     Dates: start: 20110101, end: 20110328
  2. CLOZAPINE [Suspect]
     Route: 048
     Dates: start: 20110321, end: 20110321
  3. CLOZAPINE [Suspect]
     Route: 048
     Dates: start: 20110325, end: 20110325
  4. CLOZAPINE [Suspect]
     Route: 048
     Dates: start: 20110323, end: 20110324
  5. CLOZAPINE [Suspect]
     Indication: PRODUCT USED FOR UNKNOWN INDICATION
     Route: 048
  6. CLOZAPINE [Suspect]
     Route: 048
     Dates: start: 20110322, end: 20110322
  7. CLOZAPINE [Suspect]
     Route: 048
     Dates: start: 20110326, end: 20110327
  8. ESCITALOPRAM [Concomitant]
     Dosage: SINCE MONTHS
     Route: 048

REACTIONS (4)
  - SINUS TACHYCARDIA [None]
  - PARAESTHESIA [None]
  - HOSPITALISATION [None]
  - NAUSEA [None]
